FAERS Safety Report 17263232 (Version 3)
Quarter: 2020Q1

REPORT INFORMATION
  Report Type: Spontaneous
  Country: AR (occurrence: AR)
  Receive Date: 20200113
  Receipt Date: 20200219
  Transmission Date: 20200409
  Serious: Yes (Other)
  Sender: FDA-Public Use
  Company Number: AR-ROCHE-2512591

PATIENT
  Age: 65 Year
  Sex: Female

DRUGS (10)
  1. PREDNISONE. [Concomitant]
     Active Substance: PREDNISONE
     Dosage: 7 CYCLES
     Route: 065
     Dates: start: 20131014, end: 20140411
  2. RITUXIMAB. [Suspect]
     Active Substance: RITUXIMAB
     Indication: DIFFUSE LARGE B-CELL LYMPHOMA
     Dosage: 7 CYCLES
     Route: 065
     Dates: start: 20131014, end: 20140411
  3. METHYLPREDNISOLONE. [Concomitant]
     Active Substance: METHYLPREDNISOLONE
     Dosage: 4 CYCLES
     Route: 065
     Dates: start: 20190309, end: 20190710
  4. CISPLATIN. [Concomitant]
     Active Substance: CISPLATIN
     Dosage: 4 CYCLES
     Route: 065
     Dates: start: 20190309, end: 20190710
  5. CYTARABINE. [Concomitant]
     Active Substance: CYTARABINE
     Dosage: 4 CYCLES
     Route: 065
     Dates: start: 20190309, end: 20190710
  6. CYCLOPHOSPHAMIDE. [Concomitant]
     Active Substance: CYCLOPHOSPHAMIDE
     Dosage: 7 CYCLES
     Route: 065
     Dates: start: 20131014, end: 20140411
  7. DOXORUBICIN [Concomitant]
     Active Substance: DOXORUBICIN
     Dosage: 7 CYCLES
     Route: 065
     Dates: start: 20131014, end: 20140411
  8. ETOPOSIDE. [Concomitant]
     Active Substance: ETOPOSIDE
     Dosage: 4 CYCLES
     Route: 065
     Dates: start: 20190309, end: 20190710
  9. RITUXIMAB. [Suspect]
     Active Substance: RITUXIMAB
     Dosage: 4 CYCLES
     Route: 065
     Dates: start: 20170309, end: 20170710
  10. VINCRISTINE [Concomitant]
     Active Substance: VINCRISTINE
     Dosage: 7 CYCLES
     Route: 065
     Dates: start: 20131014, end: 20140411

REACTIONS (11)
  - Night sweats [Unknown]
  - Cardiac failure [Unknown]
  - Ejection fraction decreased [Unknown]
  - Ventricular tachycardia [Unknown]
  - Weight decreased [Unknown]
  - Renal cyst [Unknown]
  - Arrhythmia [Unknown]
  - Circulatory collapse [Unknown]
  - Colon adenoma [Unknown]
  - Hepatic cyst [Unknown]
  - Cholelithiasis [Unknown]

NARRATIVE: CASE EVENT DATE: 20170329
